FAERS Safety Report 4414796-6 (Version None)
Quarter: 2004Q3

REPORT INFORMATION
  Report Type: 
  Country: None (occurrence: None)
  Receive Date: 20040804
  Receipt Date: 20031010
  Transmission Date: 20050211
  Serious: No
  Sender: FDA-Public Use
  Company Number: US-BRISTOL-MYERS SQUIBB COMPANY-12408803

PATIENT
  Age: 76 Year
  Sex: Female
  Weight: 52 kg

DRUGS (5)
  1. GLUCOVANCE [Suspect]
     Indication: DIABETES MELLITUS
     Dosage: DOSAGE FORM = 2.5MG/500MG
     Route: 048
  2. HORMONES [Concomitant]
  3. SULAR [Concomitant]
  4. ATACAND [Concomitant]
  5. MULTIVITAMIN [Concomitant]

REACTIONS (1)
  - WEIGHT INCREASED [None]
